FAERS Safety Report 8174489-9 (Version None)
Quarter: 2012Q1

REPORT INFORMATION
  Report Type: 
  Country: None (occurrence: None)
  Receive Date: 20120229
  Receipt Date: 20120210
  Transmission Date: 20120608
  Serious: Yes (Hospitalization, Other)
  Sender: FDA-Public Use
  Company Number: AU-VERTEX PHARMACEUTICALS INC.-AE-2012-000323

PATIENT
  Sex: Female
  Weight: 47 kg

DRUGS (12)
  1. CREON [Concomitant]
     Indication: PANCREATIC INSUFFICIENCY
     Route: 048
     Dates: start: 19990916
  2. SODIUM CHLORIDE [Concomitant]
     Indication: BLOOD SODIUM DECREASED
     Route: 048
  3. VX-770 [Suspect]
     Indication: CYSTIC FIBROSIS
     Route: 048
     Dates: start: 20101112
  4. PULMOZYME [Concomitant]
     Indication: CYSTIC FIBROSIS LUNG
     Dates: start: 20010711
  5. ALBUTEROL [Concomitant]
     Indication: ASTHMA
  6. GLUCOLYTE [Concomitant]
     Indication: HYPOVITAMINOSIS
     Route: 048
     Dates: start: 19970717
  7. NUTRISON [Concomitant]
     Indication: NUTRITIONAL SUPPORT
     Dates: start: 20050803
  8. BACTRIM DS [Concomitant]
     Indication: PRODUCTIVE COUGH
     Route: 048
     Dates: start: 20111211, end: 20120104
  9. FLUTICASONE PROPIONATE/SALMETEROL [Concomitant]
     Indication: CYSTIC FIBROSIS LUNG
     Dates: start: 20101112
  10. AZITHROMYCIN [Concomitant]
     Indication: CYSTIC FIBROSIS LUNG
     Route: 048
     Dates: start: 20101122
  11. VX-770 [Suspect]
     Route: 048
     Dates: start: 20091126, end: 20100101
  12. FLUTICASONE PROPIONATE/SALMETEROL [Concomitant]
     Indication: ASTHMA

REACTIONS (2)
  - DEPRESSION [None]
  - INFECTIVE PULMONARY EXACERBATION OF CYSTIC FIBROSIS [None]
